FAERS Safety Report 19253051 (Version 1)
Quarter: 2021Q2

REPORT INFORMATION
  Report Type: Spontaneous
  Country: US (occurrence: US)
  Receive Date: 20210513
  Receipt Date: 20210513
  Transmission Date: 20210717
  Serious: Yes (Other)
  Sender: FDA-Public Use
  Company Number: None

PATIENT
  Age: 31 Year
  Sex: Female
  Weight: 105.75 kg

DRUGS (4)
  1. LAMOTRIGINE. [Suspect]
     Active Substance: LAMOTRIGINE
     Indication: DEPRESSION
     Dosage: ?          QUANTITY:30 TABLET(S);?
     Dates: start: 20190505, end: 20210505
  2. LAMICTAL [Concomitant]
     Active Substance: LAMOTRIGINE
  3. KUERVO [Concomitant]
  4. METHADONE [Concomitant]
     Active Substance: METHADONE HYDROCHLORIDE

REACTIONS (7)
  - Headache [None]
  - Withdrawal syndrome [None]
  - Hyperhidrosis [None]
  - Muscle spasms [None]
  - Decreased appetite [None]
  - Pain [None]
  - Insomnia [None]

NARRATIVE: CASE EVENT DATE: 20210512
